FAERS Safety Report 21370594 (Version 1)
Quarter: 2022Q3

REPORT INFORMATION
  Report Type: Spontaneous
  Country: IT (occurrence: IT)
  Receive Date: 20220923
  Receipt Date: 20220923
  Transmission Date: 20221026
  Serious: Yes (Death)
  Sender: FDA-Public Use
  Company Number: None

PATIENT
  Age: 90 Year
  Sex: Male

DRUGS (12)
  1. PAXLOVID [Suspect]
     Active Substance: NIRMATRELVIR\RITONAVIR
     Indication: COVID-19 treatment
     Dosage: UNK
     Route: 048
     Dates: start: 20220727, end: 20220729
  2. DUTASTERIDE [Concomitant]
     Active Substance: DUTASTERIDE
     Indication: Benign prostatic hyperplasia
     Dosage: 0.5 MG/24 H
     Route: 048
  3. BARNIDIPINE HYDROCHLORIDE [Concomitant]
     Active Substance: BARNIDIPINE HYDROCHLORIDE
     Indication: Hypertension
     Dosage: 10 MG/24 H
     Route: 048
  4. BENSERAZIDE HYDROCHLORIDE\LEVODOPA [Concomitant]
     Active Substance: BENSERAZIDE HYDROCHLORIDE\LEVODOPA
     Indication: Parkinsonism
     Dosage: UNK
     Route: 048
  5. BRUFEN ANALGESICO [Concomitant]
     Dosage: UNK
     Route: 048
     Dates: start: 20220727, end: 20220729
  6. ISOSORBIDE DINITRATE [Concomitant]
     Active Substance: ISOSORBIDE DINITRATE
     Indication: Angina pectoris
     Dosage: UNK
     Route: 048
  7. TICLOPIDINE HYDROCHLORIDE [Concomitant]
     Active Substance: TICLOPIDINE HYDROCHLORIDE
     Indication: Ischaemia
     Dosage: UNK
     Route: 048
  8. AZITHROMYCIN [Concomitant]
     Active Substance: AZITHROMYCIN
     Indication: COVID-19 treatment
     Dosage: 500 MG/24 H
     Route: 048
     Dates: start: 20220727, end: 20220729
  9. QUETIAPINE FUMARATE [Concomitant]
     Active Substance: QUETIAPINE FUMARATE
     Dosage: 25 MG/12 H
     Route: 048
  10. SODIUM CHLORIDE [Concomitant]
     Active Substance: SODIUM CHLORIDE
     Indication: Fluid replacement
     Dosage: UNK
     Route: 042
  11. FUROSEMIDE [Concomitant]
     Active Substance: FUROSEMIDE
     Indication: Oedema
     Dosage: UNK
     Route: 048
  12. GLUCOS FRESENIUS KABI [Concomitant]
     Indication: Hypoglycaemia
     Dosage: UNK
     Route: 042

REACTIONS (1)
  - Cardiac arrest [Fatal]

NARRATIVE: CASE EVENT DATE: 20220729
